FAERS Safety Report 7650102-1 (Version None)
Quarter: 2011Q3

REPORT INFORMATION
  Report Type: 
  Country: None (occurrence: None)
  Receive Date: 20110802
  Receipt Date: 20110729
  Transmission Date: 20111222
  Serious: Yes (Hospitalization, Other)
  Sender: FDA-Public Use
  Company Number: BR-ABBOTT-11P-020-0842783-00

PATIENT
  Sex: Female
  Weight: 60 kg

DRUGS (4)
  1. DEFLAZACORT 4MG/ ACETAMINAPHEN 1000MG/ FOLIC ACID 1MG/ FAMOTIDINE 30MG [Concomitant]
     Indication: ARTHRITIS
     Route: 048
  2. CALCIUM 500MG/ VITAMIN D3 [Concomitant]
     Indication: BONE DISORDER
     Route: 048
  3. ATENOLOL 30MG/ LOSARTAN 40MG [Concomitant]
     Indication: BLOOD PRESSURE MANAGEMENT
     Route: 048
  4. HUMIRA [Suspect]
     Indication: RHEUMATOID ARTHRITIS
     Route: 058
     Dates: start: 20080901

REACTIONS (3)
  - INCORRECT STORAGE OF DRUG [None]
  - FALL [None]
  - FEMUR FRACTURE [None]
